FAERS Safety Report 7666824-2 (Version None)
Quarter: 2011Q3

REPORT INFORMATION
  Report Type: 
  Country: None (occurrence: None)
  Receive Date: 20110806
  Receipt Date: 20110531
  Transmission Date: 20111222
  Serious: No
  Sender: FDA-Public Use
  Company Number: US-ABBOTT-11P-163-0730027-00

PATIENT
  Sex: Male
  Weight: 78.542 kg

DRUGS (8)
  1. EMTRIVA [Concomitant]
     Indication: HIV INFECTION
  2. NIASPAN [Suspect]
     Indication: BLOOD CHOLESTEROL INCREASED
     Dates: start: 20110401, end: 20110515
  3. REYATAZ [Concomitant]
     Indication: HIV INFECTION
  4. NORVIR [Concomitant]
     Indication: HIV INFECTION
  5. NIASPAN [Suspect]
     Dates: start: 20110516
  6. LIPITOR [Concomitant]
     Indication: BLOOD CHOLESTEROL INCREASED
  7. ISENTRESS [Concomitant]
     Indication: HIV INFECTION
  8. LISINOPRIL [Concomitant]
     Indication: HYPERTENSION

REACTIONS (1)
  - FLUSHING [None]
